FAERS Safety Report 13840570 (Version 1)
Quarter: 2017Q3

REPORT INFORMATION
  Report Type: Report from Study
  Country: GB (occurrence: GB)
  Receive Date: 20170807
  Receipt Date: 20170807
  Transmission Date: 20171127
  Serious: Yes (Other)
  Sender: FDA-Public Use
  Company Number: GB-SA-2016SA062390

PATIENT
  Age: 81 Year
  Sex: Male
  Weight: 62.2 kg

DRUGS (3)
  1. VANDETANIB. [Suspect]
     Active Substance: VANDETANIB
     Indication: MESOTHELIOMA
     Route: 048
     Dates: start: 20130107, end: 20130110
  2. VANDETANIB. [Suspect]
     Active Substance: VANDETANIB
     Indication: MESOTHELIOMA
     Route: 048
     Dates: start: 20130111, end: 20130131
  3. AZD6244 [Suspect]
     Active Substance: SELUMETINIB
     Indication: MESOTHELIOMA
     Route: 048
     Dates: start: 20130121, end: 20130131

REACTIONS (1)
  - Chorioretinopathy [Recovered/Resolved]

NARRATIVE: CASE EVENT DATE: 20130128
